FAERS Safety Report 8286656 (Version 3)
Quarter: 2013Q2

REPORT INFORMATION
  Report Type: Spontaneous
  Country: US (occurrence: None)
  Receive Date: 20111122
  Receipt Date: 20120426
  Transmission Date: 20140414
  Serious: No
  Sender: FDA-Public Use
  Company Number: PHHY2011US64727

PATIENT
  Age: 43 Year
  Sex: Female

DRUGS (7)
  1. GILENYA [Suspect]
     Indication: MULTIPLE SCLEROSIS
     Route: 048
     Dates: start: 20110630
  2. OXYCODONE (OXYCODONE) [Concomitant]
  3. AMOXICILLIN [Concomitant]
  4. DETROL (TOLTERODINE L-TARTRATE) [Concomitant]
  5. FAMPRIDINE (FAMPRIDINE) [Concomitant]
  6. TIZANIDINE (TIZANIDINE) [Concomitant]
  7. PROVIGIL (MODAFINIL) [Concomitant]

REACTIONS (10)
  - VISUAL FIELD DEFECT [None]
  - SKIN LESION [None]
  - OROPHARYNGEAL PAIN [None]
  - HEADACHE [None]
  - Hypermetropia [None]
  - Dyspnoea [None]
  - Overdose [None]
  - Nodule [None]
  - Keratosis pilaris [None]
  - Scotoma [None]
